FAERS Safety Report 20238647 (Version 1)
Quarter: 2021Q4

REPORT INFORMATION
  Report Type: Spontaneous
  Country: US (occurrence: US)
  Receive Date: 20211228
  Receipt Date: 20211228
  Transmission Date: 20220303
  Serious: No
  Sender: FDA-Public Use
  Company Number: US-PURDUE PHARMA-USA-2021-0267238

PATIENT
  Age: 80 Year
  Sex: Female

DRUGS (1)
  1. OXYCONTIN [Suspect]
     Active Substance: OXYCODONE HYDROCHLORIDE
     Indication: Pain
     Dosage: 15 MG, UNK
     Route: 048
     Dates: start: 201901

REACTIONS (5)
  - Muscle spasms [Unknown]
  - Gait disturbance [Unknown]
  - Feeling abnormal [Unknown]
  - Unevaluable event [Unknown]
  - Drug dose titration not performed [Unknown]
